FAERS Safety Report 14367643 (Version 1)
Quarter: 2018Q1

REPORT INFORMATION
  Report Type: Spontaneous
  Country: US (occurrence: US)
  Receive Date: 20180109
  Receipt Date: 20180109
  Transmission Date: 20180509
  Serious: Yes (Life-Threatening, Other)
  Sender: FDA-Public Use
  Company Number: US-GLENMARK PHARMACEUTICALS-2017GMK030518

PATIENT
  Sex: Female

DRUGS (3)
  1. LIDOCAINE. [Suspect]
     Active Substance: LIDOCAINE
     Indication: LUNG DISORDER
     Dosage: UNK, TEST DOSE
     Route: 065
  2. EPINEPHRINE /00003902/ [Suspect]
     Active Substance: EPINEPHRINE HYDROCHLORIDE
     Indication: LUNG DISORDER
     Dosage: UNK
     Route: 065
  3. LIDOCAINE. [Suspect]
     Active Substance: LIDOCAINE
     Dosage: UNK, BOLUS
     Route: 065

REACTIONS (3)
  - Mental status changes [Recovered/Resolved]
  - Bradycardia [Recovered/Resolved]
  - Hypotension [Recovered/Resolved]
